FAERS Safety Report 19184519 (Version 4)
Quarter: 2021Q3

REPORT INFORMATION
  Report Type: Spontaneous
  Country: US (occurrence: US)
  Receive Date: 20210427
  Receipt Date: 20210713
  Transmission Date: 20211014
  Serious: No
  Sender: FDA-Public Use
  Company Number: NVSC2021US093947

PATIENT
  Sex: Female

DRUGS (1)
  1. RIVASTIGMINE. [Suspect]
     Active Substance: RIVASTIGMINE
     Indication: PRODUCT USED FOR UNKNOWN INDICATION
     Dosage: 9.5 MG, QD (18 MG RIVASTIGMINE BASE (PATCH 10 CM2))
     Route: 065
     Dates: start: 20210418

REACTIONS (11)
  - Disturbance in attention [Unknown]
  - Delusion [Unknown]
  - Application site irritation [Unknown]
  - Condition aggravated [Unknown]
  - Product size issue [Unknown]
  - Application site pruritus [Unknown]
  - Memory impairment [Unknown]
  - Behaviour disorder [Unknown]
  - Thinking abnormal [Unknown]
  - Confusional state [Unknown]
  - Application site erythema [Unknown]
